FAERS Safety Report 8846533 (Version 1)
Quarter: 2012Q4

REPORT INFORMATION
  Report Type: 
  Country: US (occurrence: US)
  Receive Date: 20121017
  Receipt Date: 20121017
  Transmission Date: 20130627
  Serious: Yes (Death, Hospitalization)
  Sender: FDA-Public Use
  Company Number: US-GLAXOSMITHKLINE-A0852895A

PATIENT
  Age: 90 Year
  Sex: Male

DRUGS (1)
  1. AVANDIA [Suspect]
     Indication: DIABETES MELLITUS
     Route: 048
     Dates: start: 2003, end: 2007

REACTIONS (4)
  - Cardiac failure congestive [Fatal]
  - Heart injury [Unknown]
  - Coronary artery disease [Fatal]
  - Atrial fibrillation [Unknown]
